FAERS Safety Report 7432751-9 (Version None)
Quarter: 2011Q2

REPORT INFORMATION
  Report Type: 
  Country: None (occurrence: None)
  Receive Date: 20110422
  Receipt Date: 20110414
  Transmission Date: 20111010
  Serious: Yes (Hospitalization)
  Sender: FDA-Public Use
  Company Number: A0923810A

PATIENT
  Age: 90 Year
  Sex: Male

DRUGS (2)
  1. LOSARTAN POTASSIUM [Suspect]
     Route: 065
  2. COREG [Suspect]
     Route: 065

REACTIONS (2)
  - ADVERSE EVENT [None]
  - ANGIOEDEMA [None]
